FAERS Safety Report 4505405-6 (Version None)
Quarter: 2004Q4

REPORT INFORMATION
  Report Type: 
  Country: None (occurrence: None)
  Receive Date: 20041116
  Receipt Date: 20041101
  Transmission Date: 20050328
  Serious: No
  Sender: FDA-Public Use
  Company Number: 2004AP05597

PATIENT
  Age: 23 Year
  Sex: Male
  Weight: 80 kg

DRUGS (5)
  1. MEROPENEM [Suspect]
     Indication: BRAIN ABSCESS
     Dosage: 6 G DAILY IV
     Route: 042
     Dates: start: 20040720, end: 20040809
  2. MEROPENEM [Suspect]
     Indication: INTRASPINAL ABSCESS
     Dosage: 6 G DAILY IV
     Route: 042
     Dates: start: 20040720, end: 20040809
  3. PHENYTOIN SODIUM [Suspect]
     Indication: CONVULSION
     Dosage: 300 MG DAILY PO
     Route: 048
     Dates: start: 20040605, end: 20040809
  4. PARACETAMOL [Concomitant]
  5. METOCLOPRAMIDE HYDROCHLORIDE [Concomitant]

REACTIONS (1)
  - FEBRILE NEUTROPENIA [None]
